FAERS Safety Report 9513929 (Version 2)
Quarter: 2014Q1

REPORT INFORMATION
  Report Type: Spontaneous
  Country: US (occurrence: US)
  Receive Date: 20130910
  Receipt Date: 20140321
  Transmission Date: 20141002
  Serious: Yes (Hospitalization)
  Sender: FDA-Public Use
  Company Number: US-B.I. PHARMACEUTICALS,INC./RIDGEFIELD-2013-BI-27294BP

PATIENT
  Sex: Female
  Weight: 82.1 kg

DRUGS (16)
  1. PRADAXA [Suspect]
     Indication: ATRIAL FIBRILLATION
     Dosage: 300 MG
     Route: 048
     Dates: start: 20101209
  2. PLAVIX [Suspect]
     Indication: CEREBROVASCULAR DISORDER
     Dosage: 75 MG
     Route: 048
  3. CALCIUM CARBONATE WITH VITAMIN D [Concomitant]
     Route: 048
  4. VITAMIN D [Concomitant]
     Route: 048
  5. KLOR-CON [Concomitant]
     Dosage: 20 MEQ
     Route: 048
  6. MIRALAX [Concomitant]
     Indication: CONSTIPATION
     Route: 048
  7. WELLBUTRIN [Concomitant]
     Indication: DEPRESSION
     Dosage: 150 MG
     Route: 048
  8. NORVASC [Concomitant]
     Indication: HYPERTENSION
     Dosage: 5 MG
     Route: 048
  9. CRESTOR [Concomitant]
     Indication: DYSLIPIDAEMIA
     Dosage: 20 MG
     Route: 048
  10. HYDROCHLOROTHIAZIDE [Concomitant]
     Indication: HYPERTENSION
     Dosage: 25 MG
     Route: 048
  11. LAMICTAL [Concomitant]
     Dosage: 100 MG
     Route: 048
  12. SYNTHROID [Concomitant]
     Indication: HYPOTHYROIDISM
     Dosage: 88 MCG
     Route: 048
  13. METOPROLOL [Concomitant]
     Indication: HYPERTENSION
     Dosage: 100 MG
     Route: 065
  14. LOSARTAN [Concomitant]
     Indication: HYPERTENSION
     Dosage: 50 MG
     Route: 048
  15. RAMIPRIL [Concomitant]
     Indication: HYPERTENSION
     Dosage: 5 MG
     Route: 048
  16. XANAX [Concomitant]
     Indication: SLEEP DISORDER
     Route: 048

REACTIONS (2)
  - Lower gastrointestinal haemorrhage [Recovered/Resolved]
  - Post procedural haemorrhage [Recovered/Resolved]
